FAERS Safety Report 24717600 (Version 1)
Quarter: 2024Q4

REPORT INFORMATION
  Report Type: Spontaneous
  Country: US (occurrence: None)
  Receive Date: 20241210
  Receipt Date: 20241210
  Transmission Date: 20250114
  Serious: Yes (Hospitalization)
  Sender: Public
  Company Number: None

PATIENT
  Age: 4 Year
  Sex: Male

DRUGS (4)
  1. NUWIQ [Suspect]
     Active Substance: ANTIHEMOPHILIC FACTOR, HUMAN RECOMBINANT
     Indication: Factor VIII deficiency
     Dosage: OTHER ROUTE : SLOW IV PUSH;? INFUSE 390 UNITS (351-429] SLOW IV PUSH DAILY AS NEEDED FOR MINOR BLEED
     Route: 050
     Dates: start: 202402
  2. HEMLIBRA [Concomitant]
     Active Substance: EMICIZUMAB-KXWH
  3. BLUNT FILTER NEEDL [Concomitant]
  4. HEMLIBRA [Concomitant]
     Active Substance: EMICIZUMAB-KXWH

REACTIONS (1)
  - Gastrointestinal haemorrhage [None]

NARRATIVE: CASE EVENT DATE: 20241207
